FAERS Safety Report 6397919-1 (Version None)
Quarter: 2009Q4

REPORT INFORMATION
  Report Type: 
  Country: None (occurrence: None)
  Receive Date: 20091013
  Receipt Date: 20091005
  Transmission Date: 20100525
  Serious: No
  Sender: FDA-Public Use
  Company Number: US-SOLVAY-00209005855

PATIENT
  Age: 55 Year
  Sex: Female
  Weight: 72.727 kg

DRUGS (2)
  1. ANDROGEL [Suspect]
     Indication: ACCIDENTAL EXPOSURE
     Dosage: DAILY DOSE: 7.5 GRAM(S), AS USED: 1.5 PACKETS
     Route: 062
     Dates: start: 20040101
  2. VITAMIN TAB [Concomitant]
     Indication: ACCIDENTAL EXPOSURE
     Dosage: DAILY DOSE:  UNKNOWN
     Route: 048

REACTIONS (7)
  - BLOOD CORTISOL DECREASED [None]
  - BLOOD TESTOSTERONE INCREASED [None]
  - DYSKINESIA [None]
  - DYSPHONIA [None]
  - INTERVERTEBRAL DISC PROTRUSION [None]
  - MYALGIA [None]
  - TREMOR [None]
